FAERS Safety Report 5759170-5 (Version None)
Quarter: 2008Q2

REPORT INFORMATION
  Report Type: 
  Country: None (occurrence: None)
  Receive Date: 20080602
  Receipt Date: 20080522
  Transmission Date: 20081010
  Serious: Yes (Other)
  Sender: FDA-Public Use
  Company Number: 2007EU001528

PATIENT
  Age: 70 Year
  Sex: Female

DRUGS (8)
  1. VESICARE [Suspect]
     Indication: BLADDER DISORDER
     Dosage: 10 MG, UID/QD, ORAL
     Route: 048
     Dates: start: 20070201
  2. ASPIRIN [Concomitant]
  3. ACETAMINOPHEN W/ CODEINE [Concomitant]
  4. GASTROCOTE (SODIUM BICARBONATE, ALUMINIUM HYDROXIDE GEL, DRIED, MAGNES [Concomitant]
  5. LEVOTHYROXINE SODIUM [Concomitant]
  6. MIRTAZAPINE [Concomitant]
  7. OMEPRAZOLE [Concomitant]
  8. VALSARTAN [Concomitant]

REACTIONS (2)
  - DIZZINESS [None]
  - FALL [None]
